FAERS Safety Report 14250801 (Version 2)
Quarter: 2018Q1

REPORT INFORMATION
  Report Type: Spontaneous
  Country: US (occurrence: US)
  Receive Date: 20171205
  Receipt Date: 20180207
  Transmission Date: 20180508
  Serious: No
  Sender: FDA-Public Use
  Company Number: US-PFIZER INC-2017519804

PATIENT
  Age: 67 Year
  Sex: Female
  Weight: 61 kg

DRUGS (7)
  1. ATROPINE SULFATE/DIPHENOXYLATE HYDROCHLORIDE [Suspect]
     Active Substance: ATROPINE SULFATE\DIPHENOXYLATE HYDROCHLORIDE
     Indication: DIARRHOEA
     Dosage: 2 TABLETS UP TO 4 X DAY AS NEEDED
     Dates: start: 20170623, end: 20170624
  2. ATROPINE SULFATE/DIPHENOXYLATE HYDROCHLORIDE [Suspect]
     Active Substance: ATROPINE SULFATE\DIPHENOXYLATE HYDROCHLORIDE
     Dosage: 1-2 TABLETS UP TO 4 TIMES A DAY AS NEEDED
     Dates: end: 201707
  3. GABAPENTIN. [Concomitant]
     Active Substance: GABAPENTIN
     Indication: PAIN
     Dosage: UNK UNK, DAILY, ^400MG 1-2 TABLETS A DAY BY MOUTH^
     Route: 048
  4. GABAPENTIN. [Concomitant]
     Active Substance: GABAPENTIN
     Dosage: UNK
  5. PANTOPRAZOLE [Concomitant]
     Active Substance: PANTOPRAZOLE
     Dosage: UNK UNK, 1X/DAY (TAKEN EARLY AM)
     Dates: start: 2014
  6. PANTOPRAZOLE [Concomitant]
     Active Substance: PANTOPRAZOLE
     Indication: GASTROOESOPHAGEAL REFLUX DISEASE
     Dosage: 40 MG, 2X/DAY
     Route: 048
  7. GABAPENTIN. [Concomitant]
     Active Substance: GABAPENTIN
     Dosage: UNK UNK, 1X/DAY (TAKEN W/BFAST)
     Dates: start: 2013

REACTIONS (5)
  - Drug ineffective [Recovered/Resolved]
  - Product use issue [Unknown]
  - Nausea [Recovered/Resolved]
  - Malaise [Recovered/Resolved]
  - Product use issue [None]

NARRATIVE: CASE EVENT DATE: 20170623
